FAERS Safety Report 26174118 (Version 1)
Quarter: 2025Q4

REPORT INFORMATION
  Report Type: Spontaneous
  Country: US (occurrence: None)
  Receive Date: 20251217
  Receipt Date: 20251217
  Transmission Date: 20260118
  Serious: Yes (Hospitalization)
  Sender: FDA-CTU
  Company Number: None

PATIENT
  Sex: Female

DRUGS (3)
  1. SILDENAFIL CITRATE [Suspect]
     Active Substance: SILDENAFIL CITRATE
     Indication: Pulmonary arterial hypertension
     Dosage: 20 MG 3 TIMES A DAY ORAL
     Route: 048
     Dates: start: 20241030
  2. YUTREPIA [Concomitant]
     Active Substance: TREPROSTINIL SODIUM
  3. YUTREPIA (VOU) [Concomitant]

REACTIONS (2)
  - Food allergy [None]
  - COVID-19 [None]
